FAERS Safety Report 18238754 (Version 1)
Quarter: 2020Q3

REPORT INFORMATION
  Report Type: Spontaneous
  Country: GB (occurrence: GB)
  Receive Date: 20200907
  Receipt Date: 20200907
  Transmission Date: 20201103
  Serious: Yes (Other)
  Sender: FDA-Public Use
  Company Number: GB-GLAXOSMITHKLINE-GB2020GSK179056

PATIENT
  Age: 63 Year
  Sex: Male

DRUGS (4)
  1. VALACICLOVIR [Concomitant]
     Active Substance: VALACYCLOVIR HYDROCHLORIDE
     Indication: VARICELLA ZOSTER VIRUS INFECTION
     Dosage: UNK
     Route: 048
  2. ACICLOVIR [Suspect]
     Active Substance: ACYCLOVIR
     Indication: VARICELLA ZOSTER VIRUS INFECTION
     Dosage: 13 MG/KG, TID
     Route: 042
  3. FOSCARNET [Concomitant]
     Active Substance: FOSCARNET
     Indication: VARICELLA ZOSTER VIRUS INFECTION
     Dosage: 2.4 MG PER 0.1 ML ((TWICE WEEKLY, TOTAL FIVE INJECTIONS))
     Route: 042
  4. ACICLOVIR [Suspect]
     Active Substance: ACYCLOVIR
     Dosage: 400 MG, BID
     Route: 042

REACTIONS (6)
  - Subretinal hyperreflective exudation [Recovered/Resolved]
  - Acute kidney injury [Recovered/Resolved]
  - Renal impairment [Recovered/Resolved]
  - Retinal detachment [Recovered/Resolved]
  - Retinal thickening [Recovered/Resolved]
  - Retinal exudates [Recovered/Resolved]
